FAERS Safety Report 5782257-8 (Version None)
Quarter: 2008Q2

REPORT INFORMATION
  Report Type: 
  Country: None (occurrence: None)
  Receive Date: 20080618
  Receipt Date: 20080611
  Transmission Date: 20081010
  Serious: Yes (Death, Other)
  Sender: FDA-Public Use
  Company Number: 2008JP001459

PATIENT
  Age: 52 Year
  Sex: Male
  Weight: 78.6 kg

DRUGS (18)
  1. FUNGUARD(MICAFUNGIN) INJECTION [Suspect]
     Indication: PYREXIA
     Dosage: 50 MG, UID/QD; IV DRIP; 150 MG, UID/QD; IV DRIP
     Route: 041
     Dates: start: 20030611, end: 20030620
  2. FUNGUARD(MICAFUNGIN) INJECTION [Suspect]
     Indication: PYREXIA
     Dosage: 50 MG, UID/QD; IV DRIP; 150 MG, UID/QD; IV DRIP
     Route: 041
     Dates: start: 20030806, end: 20030807
  3. ALLOPURINOL [Suspect]
     Indication: HYPERURICAEMIA
     Dosage: 100 MG, BID; ORAL;
     Route: 048
     Dates: start: 20030609, end: 20030619
  4. MEROPEN(MEROPENEM) INJECTION [Suspect]
     Indication: INFECTION
     Dosage: 1 G, BID, IV DRIP
     Route: 041
     Dates: start: 20030806, end: 20030807
  5. AMLODIN 9AMLODIPINE BESILATE) TABLET [Concomitant]
  6. MINOMYCIN (MINOCYCLINE HYDROCHLORIDE) CAPSULE [Concomitant]
  7. CYLOCIDE 9CYTARABINE) INJECTION [Concomitant]
  8. BROACT (CEFPIROME SULFATE) INJECTION [Concomitant]
  9. VICCILLIN INJECTION [Concomitant]
  10. VEEN 3G (GLUCOSE, SODIUM ACETATE, POTASSIUM CHLORIDE, POTASSIUM PHOSPH [Concomitant]
  11. FRAGMIN [Concomitant]
  12. DIFLUCAN (FLUCONAZOLE) CAPSULE [Concomitant]
  13. LASIX (FUROSEMIDE) INJECTION [Concomitant]
  14. SANDIMMUM INJECTION [Concomitant]
  15. ALKERAN [Concomitant]
  16. NEUPOGEN [Concomitant]
  17. PREDNISOLONE [Concomitant]
  18. VANCOMYCIN HYDROCHLORIDE (VANCOMYCIN HYDROCHLORIDE) INJECTION [Concomitant]

REACTIONS (6)
  - CARDIO-RESPIRATORY ARREST [None]
  - CEREBRAL HAEMORRHAGE [None]
  - CORD BLOOD TRANSPLANT THERAPY [None]
  - GENERAL PHYSICAL CONDITION ABNORMAL [None]
  - HEPATIC FUNCTION ABNORMAL [None]
  - RENAL IMPAIRMENT [None]
